FAERS Safety Report 6103476-7 (Version None)
Quarter: 2009Q1

REPORT INFORMATION
  Report Type: 
  Country: None (occurrence: None)
  Receive Date: 20090305
  Receipt Date: 20090223
  Transmission Date: 20090719
  Serious: Yes (Hospitalization)
  Sender: FDA-Public Use
  Company Number: US-PURDUE-USA_2009_0037116

PATIENT
  Age: 63 Year
  Sex: Male

DRUGS (5)
  1. OXYCONTIN [Suspect]
     Indication: MUSCULOSKELETAL PAIN
     Dosage: 120 MG, Q4- 6H
  2. OXYCODONE [Concomitant]
     Indication: PAIN
     Dosage: 5 MG, PRN
  3. FLEET                              /01721201/ [Concomitant]
     Indication: CONSTIPATION
     Dosage: 1 UNK, DAILY
  4. DOCUSATE [Concomitant]
     Indication: CONSTIPATION
     Dosage: 100 MG, DAILY
  5. NAPROXEN [Concomitant]
     Indication: INFLAMMATION
     Dosage: 2 UNK, DAILY

REACTIONS (2)
  - CONSTIPATION [None]
  - INTESTINAL PERFORATION [None]
